FAERS Safety Report 7818175-0 (Version None)
Quarter: 2011Q4

REPORT INFORMATION
  Report Type: 
  Country: None (occurrence: None)
  Receive Date: 20111017
  Receipt Date: 20111011
  Transmission Date: 20120403
  Serious: Yes (Death, Hospitalization)
  Sender: FDA-Public Use
  Company Number: FR-CEPHALON-2011005378

PATIENT
  Sex: Male
  Weight: 64 kg

DRUGS (6)
  1. SECTRAL [Concomitant]
     Dates: start: 20110811, end: 20110901
  2. OXYCODONE HCL [Concomitant]
     Dates: start: 20110630, end: 20110901
  3. MIRTAZAPINE [Concomitant]
     Dates: start: 20110630, end: 20110901
  4. DEXAMETHASONE [Suspect]
     Indication: MULTIPLE MYELOMA
     Route: 048
     Dates: start: 20110609, end: 20110713
  5. VELCADE [Suspect]
     Indication: MULTIPLE MYELOMA
     Route: 042
     Dates: start: 20110609, end: 20110713
  6. BENDAMUSTINE HCL [Suspect]
     Indication: MULTIPLE MYELOMA
     Route: 042
     Dates: start: 20110609, end: 20110713

REACTIONS (1)
  - TOXIC ENCEPHALOPATHY [None]
